FAERS Safety Report 22677229 (Version 3)
Quarter: 2025Q3

REPORT INFORMATION
  Report Type: Report from Study
  Country: CA (occurrence: CA)
  Receive Date: 20230706
  Receipt Date: 20250827
  Transmission Date: 20251021
  Serious: Yes (Other)
  Sender: TAKEDA
  Company Number: CA-TAKEDA-2023TUS066030

PATIENT
  Sex: Female

DRUGS (15)
  1. VEDOLIZUMAB [Suspect]
     Active Substance: VEDOLIZUMAB
     Indication: Colitis ulcerative
  2. VEDOLIZUMAB [Suspect]
     Active Substance: VEDOLIZUMAB
     Dosage: 300 MILLIGRAM, Q4WEEKS
     Dates: start: 20220922
  3. VEDOLIZUMAB [Suspect]
     Active Substance: VEDOLIZUMAB
     Dosage: 300 MILLIGRAM, Q4WEEKS
  4. VEDOLIZUMAB [Suspect]
     Active Substance: VEDOLIZUMAB
     Dosage: 300 MILLIGRAM, Q4WEEKS
  5. PERINDOPRIL [Concomitant]
     Active Substance: PERINDOPRIL
  6. ESCITALOPRAM [Concomitant]
     Active Substance: ESCITALOPRAM OXALATE
  7. MYRBETRIQ [Concomitant]
     Active Substance: MIRABEGRON
  8. ROSUVASTATIN [Concomitant]
     Active Substance: ROSUVASTATIN
  9. QUETIAPINE [Concomitant]
     Active Substance: QUETIAPINE
  10. Micro k [Concomitant]
  11. Multi Women [Concomitant]
  12. PRED FORTE [Concomitant]
     Active Substance: PREDNISOLONE ACETATE
     Dosage: UNK UNK, Q2HR
     Dates: start: 20250404
  13. DEXAMETHASONE [Concomitant]
     Active Substance: DEXAMETHASONE
     Route: 061
  14. ATROPINE [Concomitant]
     Active Substance: ATROPINE
     Dosage: UNK UNK, BID
     Dates: start: 20250404
  15. Novo ferrogluc [Concomitant]

REACTIONS (5)
  - Uveitis [Unknown]
  - Herpes zoster pharyngitis [Unknown]
  - Ophthalmic herpes zoster [Unknown]
  - Adjustment disorder with depressed mood [Unknown]
  - Malaise [Unknown]
